FAERS Safety Report 14337815 (Version 2)
Quarter: 2018Q1

REPORT INFORMATION
  Report Type: Spontaneous
  Country: MA (occurrence: MA)
  Receive Date: 20171229
  Receipt Date: 20180219
  Transmission Date: 20180509
  Serious: Yes (Other)
  Sender: FDA-Public Use
  Company Number: MA-SUN PHARMACEUTICAL INDUSTRIES LTD-2017RR-158240

PATIENT
  Age: 70 Year
  Sex: Female

DRUGS (3)
  1. SUNITINIB [Suspect]
     Active Substance: SUNITINIB
     Indication: CLEAR CELL RENAL CELL CARCINOMA
     Dosage: 37.5 MG/DAY; 4/6 WEEKS ; CYCLICAL
     Route: 065
  2. DENOSUMAB [Suspect]
     Active Substance: DENOSUMAB
     Indication: DUCTAL ADENOCARCINOMA OF PANCREAS
     Dosage: 120 MG EVERY 4 WEEKS ; CYCLICAL
     Route: 065
  3. GEMCITABINE [Suspect]
     Active Substance: GEMCITABINE\GEMCITABINE HYDROCHLORIDE
     Indication: METASTASES TO BONE
     Dosage: ON DAYS 1, 8, AND 15; REPEATED EVERY 4 WEEKS ; CYCLICAL
     Route: 065

REACTIONS (2)
  - Fatigue [Recovering/Resolving]
  - Hypertension [Recovering/Resolving]
